FAERS Safety Report 4752859-6 (Version None)
Quarter: 2005Q3

REPORT INFORMATION
  Report Type: 
  Country: None (occurrence: None)
  Receive Date: 20050714
  Receipt Date: 20040624
  Transmission Date: 20060218
  Serious: Yes (Hospitalization)
  Sender: FDA-Public Use
  Company Number: 200414848US

PATIENT
  Age: 75 Year
  Sex: Male

DRUGS (12)
  1. TAXOTERE [Suspect]
     Indication: PROSTATE CANCER
     Dosage: 40 MG CYC IV
     Route: 042
     Dates: start: 20040323, end: 20040330
  2. XELODA [Suspect]
     Dosage: 1500 MG Q2W PO
     Route: 048
  3. ERGOCALCIFEROL, RETINOL, CALCIUM CARBONATE (CALCITROL) [Concomitant]
  4. CALCIUM AMINOGLUTETHIMIDE (CYTADREN) [Concomitant]
  5. EPOGEN [Concomitant]
  6. ESTRAMUSTINE PHOSPHATE SODIUM (EMCYT) [Concomitant]
  7. HYDROCORTISONE [Concomitant]
  8. LEUPRORELIN ACETATE (LUPRON) [Concomitant]
  9. PROSCAR [Concomitant]
  10. THALIDOMIDE (THALOMID) [Concomitant]
  11. ZOLEDRONIC ACID (ZOMETA) [Concomitant]
  12. LOVENOX [Concomitant]

REACTIONS (4)
  - DEHYDRATION [None]
  - DIARRHOEA [None]
  - NAUSEA [None]
  - PYREXIA [None]
